FAERS Safety Report 25884807 (Version 1)
Quarter: 2025Q4

REPORT INFORMATION
  Report Type: Report from Study
  Country: PH (occurrence: PH)
  Receive Date: 20251006
  Receipt Date: 20251006
  Transmission Date: 20260118
  Serious: Yes (Hospitalization, Other)
  Sender: OTSUKA
  Company Number: PH-MMM-Otsuka-78SML9C3

PATIENT

DRUGS (1)
  1. TOLVAPTAN [Suspect]
     Active Substance: TOLVAPTAN
     Indication: Oedema
     Dosage: 1 DF (15 MG TABLET EVERY SUNDAY)

REACTIONS (2)
  - Renal failure [Unknown]
  - Inappropriate schedule of product administration [Unknown]

NARRATIVE: CASE EVENT DATE: 20241001
